FAERS Safety Report 11185365 (Version 2)
Quarter: 2015Q2

REPORT INFORMATION
  Report Type: Spontaneous
  Country: US (occurrence: US)
  Receive Date: 20150612
  Receipt Date: 20150616
  Transmission Date: 20150821
  Serious: No
  Sender: FDA-Public Use
  Company Number: US-BAYER-2015-325419

PATIENT
  Age: 52 Year
  Sex: Female
  Weight: 48 kg

DRUGS (1)
  1. DR. SCHOLLS ODOR-X FOOT AND SNEAKER [Suspect]
     Active Substance: TOLNAFTATE
     Indication: TINEA PEDIS
     Dosage: 1 DF, PRN
     Route: 061
     Dates: start: 201505, end: 20150608

REACTIONS (4)
  - Erythema [Recovered/Resolved]
  - Skin disorder [Recovered/Resolved]
  - Skin haemorrhage [Recovered/Resolved]
  - Burning sensation [Recovered/Resolved]

NARRATIVE: CASE EVENT DATE: 20150608
